FAERS Safety Report 9913057 (Version 1)
Quarter: 2014Q1

REPORT INFORMATION
  Report Type: Spontaneous
  Country: BR (occurrence: BR)
  Receive Date: 20140220
  Receipt Date: 20140220
  Transmission Date: 20141002
  Serious: Yes (Hospitalization)
  Sender: FDA-Public Use
  Company Number: BR-JNJFOC-20140210259

PATIENT
  Age: 98 Year
  Sex: Male

DRUGS (4)
  1. XARELTO [Suspect]
     Indication: THROMBOSIS PROPHYLAXIS
     Route: 048
     Dates: start: 201302
  2. XARELTO [Suspect]
     Indication: THROMBOSIS
     Route: 048
     Dates: start: 201302
  3. ASPIRINA PREVENT [Suspect]
     Indication: PRODUCT USED FOR UNKNOWN INDICATION
     Route: 048
  4. PLAVIX [Concomitant]
     Route: 065

REACTIONS (1)
  - Deep vein thrombosis [Recovering/Resolving]
